FAERS Safety Report 5246050-7 (Version None)
Quarter: 2007Q1

REPORT INFORMATION
  Report Type: 
  Country: None (occurrence: None)
  Receive Date: 20061201
  Receipt Date: 20060724
  Transmission Date: 20070707
  Serious: No
  Sender: FDA-Public Use
  Company Number: 2006PV018158

PATIENT
  Age: 56 Year
  Sex: Female
  Weight: 142.8831 kg

DRUGS (6)
  1. BYETTA [Suspect]
     Indication: DIABETES MELLITUS NON-INSULIN-DEPENDENT
     Dosage: 10 MCG;BID;SC, 5 MCG;BID;SC
     Route: 058
     Dates: start: 20060512, end: 20060611
  2. BYETTA [Suspect]
     Indication: DIABETES MELLITUS NON-INSULIN-DEPENDENT
     Dosage: 10 MCG;BID;SC, 5 MCG;BID;SC
     Route: 058
     Dates: start: 20060612
  3. METFORMIN HCL [Concomitant]
  4. GLIPIZIDE [Concomitant]
  5. AVANDIA [Concomitant]
  6. LOTENSIN [Concomitant]

REACTIONS (4)
  - DECREASED APPETITE [None]
  - INJECTION SITE URTICARIA [None]
  - THERAPEUTIC RESPONSE UNEXPECTED [None]
  - WEIGHT DECREASED [None]
